FAERS Safety Report 5967867-7 (Version None)
Quarter: 2008Q4

REPORT INFORMATION
  Report Type: 
  Country: None (occurrence: None)
  Receive Date: 20081126
  Receipt Date: 20081119
  Transmission Date: 20090506
  Serious: Yes (Hospitalization)
  Sender: FDA-Public Use
  Company Number: JP-ASTRAZENECA-2005AP01233

PATIENT
  Age: 27925 Day
  Sex: Male
  Weight: 50.6 kg

DRUGS (7)
  1. TENORMIN [Suspect]
     Indication: HYPERTENSION
     Route: 048
     Dates: start: 20020101, end: 20040816
  2. THALIDOMIDE [Interacting]
     Indication: MULTIPLE MYELOMA
     Route: 048
     Dates: start: 20040714
  3. FLUITRAN [Concomitant]
     Indication: HYPERTENSION
     Route: 048
  4. LASIX [Concomitant]
     Indication: HYPERTENSION
     Route: 048
  5. SLOW-K [Concomitant]
     Indication: HYPOKALAEMIA
     Route: 048
  6. ASPARA-CA [Concomitant]
     Indication: HYPOCALCAEMIA
     Route: 048
  7. HYDROCHLOROTHIAZIDE [Concomitant]
     Indication: HYPERTENSION

REACTIONS (3)
  - DRUG INTERACTION [None]
  - SINUS BRADYCARDIA [None]
  - SYNCOPE [None]
